FAERS Safety Report 12211780 (Version 1)
Quarter: 2016Q1

REPORT INFORMATION
  Report Type: Spontaneous
  Country: US (occurrence: US)
  Receive Date: 20160325
  Receipt Date: 20160325
  Transmission Date: 20160526
  Serious: No
  Sender: FDA-Public Use
  Company Number: US-ELI_LILLY_AND_COMPANY-US201603006728

PATIENT
  Age: 72 Year
  Sex: Male

DRUGS (1)
  1. CIALIS [Suspect]
     Active Substance: TADALAFIL
     Indication: BENIGN PROSTATIC HYPERPLASIA
     Dosage: 5 MG, QD
     Route: 065
     Dates: start: 201505

REACTIONS (7)
  - Pain in extremity [Unknown]
  - Cyanopsia [Unknown]
  - Back pain [Unknown]
  - Influenza [Unknown]
  - Vision blurred [Unknown]
  - Arthralgia [Unknown]
  - Myalgia [Unknown]
